FAERS Safety Report 4634745-5 (Version None)
Quarter: 2005Q2

REPORT INFORMATION
  Report Type: 
  Country: None (occurrence: None)
  Receive Date: 20050412
  Receipt Date: 20050412
  Transmission Date: 20051028
  Serious: Yes (Hospitalization)
  Sender: FDA-Public Use
  Company Number: None

PATIENT
  Age: 65 Year
  Sex: Female
  Weight: 63.5036 kg

DRUGS (6)
  1. VALTREX [Suspect]
     Indication: HERPES ZOSTER
     Dosage: 1000 DAILY ORAL
     Route: 048
     Dates: start: 20040930, end: 20041004
  2. ALLOPURINOL [Concomitant]
  3. LEXAPRO [Concomitant]
  4. PSEUDOEPHEDRINE HCL [Concomitant]
  5. PREVACID [Concomitant]
  6. DILTIAZEM [Concomitant]

REACTIONS (4)
  - DYSARTHRIA [None]
  - HALLUCINATION [None]
  - HYPERVISCOSITY SYNDROME [None]
  - MENTAL STATUS CHANGES [None]
